FAERS Safety Report 4864762-1 (Version None)
Quarter: 2005Q4

REPORT INFORMATION
  Report Type: 
  Country: None (occurrence: None)
  Receive Date: 20051222
  Receipt Date: 20051005
  Transmission Date: 20060501
  Serious: Yes (Death)
  Sender: FDA-Public Use
  Company Number: US-MERCK-0510USA04457

PATIENT
  Age: 86 Year
  Sex: Female

DRUGS (1)
  1. VIOXX [Suspect]
     Indication: PAIN
     Route: 048
     Dates: start: 20001001, end: 20010803

REACTIONS (3)
  - CEREBROVASCULAR ACCIDENT [None]
  - EPIDIDYMITIS [None]
  - ISCHAEMIC STROKE [None]
